FAERS Safety Report 15152665 (Version 4)
Quarter: 2018Q3

REPORT INFORMATION
  Report Type: Spontaneous
  Country: FR (occurrence: FR)
  Receive Date: 20180717
  Receipt Date: 20180910
  Transmission Date: 20181010
  Serious: Yes (Hospitalization, Other)
  Sender: FDA-Public Use
  Company Number: FR-AUROBINDO-AUR-APL-2018-036129

PATIENT
  Age: 33 Year
  Sex: Male

DRUGS (5)
  1. ATARAX [Suspect]
     Active Substance: HYDROXYZINE HYDROCHLORIDE
     Indication: HYPERSENSITIVITY
     Dosage: UNK
     Route: 048
     Dates: start: 20170117, end: 20170127
  2. OMEPRAZOLE. [Suspect]
     Active Substance: OMEPRAZOLE
     Indication: PRODUCT USED FOR UNKNOWN INDICATION
     Dosage: UNK, SEVERAL YEARS, DAILY INTAKE ()
     Route: 048
     Dates: end: 20170127
  3. NOXAFIL [Suspect]
     Active Substance: POSACONAZOLE
     Indication: ASPERGILLUS INFECTION
     Dosage: 300 MG ONCE DAILY INCREASED TO 400 MG DAILY ()
     Route: 048
     Dates: start: 20161028, end: 20170104
  4. NOXAFIL [Suspect]
     Active Substance: POSACONAZOLE
     Indication: ASPERGILLUS INFECTION
     Dosage: 300 MILLIGRAM, TWO TIMES A DAY
     Route: 048
     Dates: start: 20161027, end: 20161027
  5. NOXAFIL [Suspect]
     Active Substance: POSACONAZOLE
     Dosage: 500MG (5 TABLETS) PER DAY FROM 05?JAN?2017
     Route: 048
     Dates: start: 20170105, end: 20170127

REACTIONS (2)
  - Neutropenia [Recovered/Resolved]
  - Incorrect dosage administered [Unknown]

NARRATIVE: CASE EVENT DATE: 20170127
